FAERS Safety Report 5247422-7 (Version None)
Quarter: 2007Q1

REPORT INFORMATION
  Report Type: 
  Country: None (occurrence: None)
  Receive Date: 20070223
  Receipt Date: 20070223
  Transmission Date: 20070707
  Serious: No
  Sender: FDA-Public Use
  Company Number: None

PATIENT

DRUGS (1)
  1. ZOLOFT [Suspect]

REACTIONS (8)
  - ANXIETY [None]
  - DRUG INEFFECTIVE [None]
  - FOOD CRAVING [None]
  - MANIA [None]
  - MENTAL IMPAIRMENT [None]
  - MIGRAINE [None]
  - PHARMACEUTICAL PRODUCT COMPLAINT [None]
  - WEIGHT INCREASED [None]
